FAERS Safety Report 12355120 (Version 5)
Quarter: 2016Q4

REPORT INFORMATION
  Report Type: Spontaneous
  Country: US (occurrence: US)
  Receive Date: 20160511
  Receipt Date: 20161227
  Transmission Date: 20170207
  Serious: Yes (Other)
  Sender: FDA-Public Use
  Company Number: US-PFIZER INC-2016079225

PATIENT
  Age: 55 Year
  Sex: Female

DRUGS (29)
  1. COZAAR [Concomitant]
     Active Substance: LOSARTAN POTASSIUM
     Indication: ESSENTIAL HYPERTENSION
     Dosage: 100 MG, 1X/DAY
     Route: 048
  2. HUMIRA [Concomitant]
     Active Substance: ADALIMUMAB
     Indication: RHEUMATOID ARTHRITIS
     Dosage: 40 MG/0.8 ML INJECTION, INJECT ONE DOSE EVERY 2 WEEKS
     Route: 058
  3. SOMA [Concomitant]
     Active Substance: CARISOPRODOL
     Indication: MUSCLE SPASMS
     Dosage: 350 MG, 1 TABLET 2X/DAY AS NEEDED
     Route: 048
  4. CYMBALTA [Concomitant]
     Active Substance: DULOXETINE HYDROCHLORIDE
     Indication: DEPRESSION
     Dosage: 30 MG, 1X/DAY
     Route: 048
  5. FOLVITE [Concomitant]
     Active Substance: FOLIC ACID
     Indication: ARTHRITIS
     Dosage: 1 MG, 1X/DAY
     Route: 048
  6. PRILOSEC [Concomitant]
     Active Substance: OMEPRAZOLE MAGNESIUM
     Indication: GASTROOESOPHAGEAL REFLUX DISEASE
     Dosage: 20 MG, 2X/DAY
     Route: 048
  7. ROXICODONE [Concomitant]
     Active Substance: OXYCODONE HYDROCHLORIDE
     Indication: SPINAL OSTEOARTHRITIS
     Dosage: 5 MG, EVERY 6 HOURS AS NEEDED
     Route: 048
  8. VENTOLIN HFA [Concomitant]
     Active Substance: ALBUTEROL SULFATE
     Indication: WHEEZING
  9. ATIVAN [Concomitant]
     Active Substance: LORAZEPAM
     Indication: ANXIETY
  10. ZOFRAN [Concomitant]
     Active Substance: ONDANSETRON HYDROCHLORIDE
     Dosage: 4 MG, UNK
     Route: 042
     Dates: start: 20160119
  11. PROVENTIL HFA [Concomitant]
     Active Substance: ALBUTEROL SULFATE
     Indication: WHEEZING
  12. SOMA [Concomitant]
     Active Substance: CARISOPRODOL
     Indication: SPINAL OSTEOARTHRITIS
  13. GLUCAGON. [Concomitant]
     Active Substance: GLUCAGON
     Dosage: 2 MG, UNK
     Route: 042
     Dates: start: 20160119
  14. CYMBALTA [Concomitant]
     Active Substance: DULOXETINE HYDROCHLORIDE
     Indication: FIBROMYALGIA
     Dosage: 60 MG, DAILY
     Route: 048
  15. ATIVAN [Concomitant]
     Active Substance: LORAZEPAM
     Indication: PANIC ATTACK
     Dosage: ABLET 1 MG TAKE 1-2 TABLETS EVERY EIGHT HOURS AS NEEDED
     Route: 048
  16. PROCARDIA [Concomitant]
     Active Substance: NIFEDIPINE
     Indication: ESSENTIAL HYPERTENSION
     Dosage: 60 MG, DAILY
     Route: 048
  17. VALIUM [Concomitant]
     Active Substance: DIAZEPAM
     Dosage: 10 MG, UNK
  18. PROVENTIL HFA [Concomitant]
     Active Substance: ALBUTEROL SULFATE
     Indication: BRONCHITIS
     Dosage: 90MCG/ACTUATION INHALER, INHALE 2 PUFFS INTO THE LUNGS EVERY 4 HOURS AS NEEDED
     Route: 045
  19. VENTOLIN HFA [Concomitant]
     Active Substance: ALBUTEROL SULFATE
     Indication: BRONCHITIS
     Dosage: 90MCG/ACTUATION INHALER, INHALE 2 PUFFS INTO THE LUNGS EVERY 4 HOURS AS NEEDED
     Route: 045
  20. CATAPRES [Concomitant]
     Active Substance: CLONIDINE HYDROCHLORIDE
     Indication: ESSENTIAL HYPERTENSION
     Dosage: 0.2 MG, 2X/DAY
     Route: 048
  21. ROXICODONE [Concomitant]
     Active Substance: OXYCODONE HYDROCHLORIDE
     Indication: PAIN
  22. METHOTREXATE. [Concomitant]
     Active Substance: METHOTREXATE
     Indication: ARTHRITIS
     Dosage: 0.6 ML, WEEKLY ((PF) 25 MG/ML SOLN)
     Route: 058
  23. GLUCAGON. [Concomitant]
     Active Substance: GLUCAGON
     Dosage: 2 MG, UNK
     Route: 042
     Dates: start: 20160119
  24. NITROSTAT [Concomitant]
     Active Substance: NITROGLYCERIN
     Dosage: 0.4 MG, UNK
     Route: 060
     Dates: start: 20160119
  25. LYRICA [Suspect]
     Active Substance: PREGABALIN
     Indication: INTERVERTEBRAL DISC DEGENERATION
     Dosage: 150 MG, 3X/DAY
     Route: 048
     Dates: start: 20120724
  26. LYRICA [Suspect]
     Active Substance: PREGABALIN
     Indication: FIBROMYALGIA
  27. LASIX [Concomitant]
     Active Substance: FUROSEMIDE
     Indication: ESSENTIAL HYPERTENSION
     Dosage: 20 MG, 1X/DAY
     Route: 048
  28. SODIUM CHLORIDE. [Concomitant]
     Active Substance: SODIUM CHLORIDE
     Dosage: 1000 ML, UNK
     Route: 042
     Dates: start: 20160119
  29. BUSPAR [Concomitant]
     Active Substance: BUSPIRONE HYDROCHLORIDE
     Indication: GENERALISED ANXIETY DISORDER
     Dosage: 15 MG, 3X/DAY
     Route: 048

REACTIONS (3)
  - Withdrawal syndrome [Unknown]
  - Arthritis [Recovered/Resolved]
  - Malaise [Recovered/Resolved]
